FAERS Safety Report 5011150-3 (Version None)
Quarter: 2006Q2

REPORT INFORMATION
  Report Type: 
  Country: None (occurrence: None)
  Receive Date: 20060523
  Receipt Date: 20060523
  Transmission Date: 20061013
  Serious: No
  Sender: FDA-Public Use
  Company Number: None

PATIENT
  Age: 69 Year
  Sex: Female
  Weight: 65 kg

DRUGS (1)
  1. HYDROMORPHONE |Y|N| [Suspect]
     Indication: PROCEDURAL PAIN
     Dosage: PCA

REACTIONS (5)
  - LOSS OF CONSCIOUSNESS [None]
  - MUSCLE CONTRACTIONS INVOLUNTARY [None]
  - MUSCLE RIGIDITY [None]
  - POST PROCEDURAL COMPLICATION [None]
  - POSTURING [None]
